FAERS Safety Report 14125615 (Version 3)
Quarter: 2017Q4

REPORT INFORMATION
  Report Type: Report from Study
  Country: US (occurrence: US)
  Receive Date: 20171025
  Receipt Date: 20171221
  Transmission Date: 20180321
  Serious: Yes (Hospitalization)
  Sender: FDA-Public Use
  Company Number: US-JNJFOC-20171027892

PATIENT
  Age: 14 Year
  Sex: Female
  Weight: 50.1 kg

DRUGS (11)
  1. TRAMADOL. [Concomitant]
     Active Substance: TRAMADOL
     Route: 065
  2. FLUOXETINE [Concomitant]
     Active Substance: FLUOXETINE HYDROCHLORIDE
     Route: 065
  3. REMICADE [Suspect]
     Active Substance: INFLIXIMAB
     Indication: INFLAMMATORY BOWEL DISEASE
     Route: 042
     Dates: start: 20140317, end: 20140317
  4. AZATHIOPRINE. [Concomitant]
     Active Substance: AZATHIOPRINE
     Route: 065
  5. DICLOFENAC SODIUM. [Concomitant]
     Active Substance: DICLOFENAC SODIUM
     Route: 065
  6. VITAMIN D [Concomitant]
     Active Substance: CHOLECALCIFEROL
     Route: 065
  7. ONDANSETRON [Concomitant]
     Active Substance: ONDANSETRON
     Route: 065
  8. ENTYVIO [Concomitant]
     Active Substance: VEDOLIZUMAB
     Route: 065
  9. TIZANIDINE. [Concomitant]
     Active Substance: TIZANIDINE
     Route: 065
  10. DOCUSATE SODIUM. [Concomitant]
     Active Substance: DOCUSATE SODIUM
     Route: 065
  11. OSCAL [Concomitant]
     Active Substance: CALCIUM CARBONATE
     Route: 065

REACTIONS (2)
  - Irritable bowel syndrome [Unknown]
  - Crohn^s disease [Recovered/Resolved]

NARRATIVE: CASE EVENT DATE: 20171009
